FAERS Safety Report 6148880-6 (Version None)
Quarter: 2009Q2

REPORT INFORMATION
  Report Type: 
  Country: None (occurrence: None)
  Receive Date: 20090408
  Receipt Date: 20090330
  Transmission Date: 20091009
  Serious: Yes (Hospitalization)
  Sender: FDA-Public Use
  Company Number: US-GENENTECH-277782

PATIENT
  Sex: Male
  Weight: 88.4 kg

DRUGS (5)
  1. BEVACIZUMAB [Suspect]
     Indication: NON-SMALL CELL LUNG CANCER
     Dosage: 15 MG/KG, Q3W
     Route: 042
     Dates: start: 20081112, end: 20090209
  2. PACLITAXEL [Suspect]
     Indication: NON-SMALL CELL LUNG CANCER
     Dosage: 432 MG, Q3W
     Route: 042
     Dates: start: 20081112
  3. CARBOPLATIN [Suspect]
     Indication: NON-SMALL CELL LUNG CANCER
     Dosage: 1068 MG, Q3W
     Route: 042
     Dates: start: 20081112
  4. AMLODIPINE [Concomitant]
     Indication: HYPERTENSION
     Dosage: 10 MG, QD
     Dates: start: 20081028
  5. MORPHINE [Concomitant]
     Indication: PAIN
     Dosage: 15 MG, BID
     Dates: start: 20081120

REACTIONS (1)
  - OESOPHAGITIS [None]
